FAERS Safety Report 13815962 (Version 1)
Quarter: 2017Q3

REPORT INFORMATION
  Report Type: Spontaneous
  Country: US (occurrence: US)
  Receive Date: 20170731
  Receipt Date: 20170731
  Transmission Date: 20171127
  Serious: No
  Sender: FDA-Public Use
  Company Number: US-SA-2016SA169708

PATIENT
  Sex: Female

DRUGS (14)
  1. AMBIEN [Suspect]
     Active Substance: ZOLPIDEM TARTRATE
     Route: 065
  2. MELATONIN [Concomitant]
     Active Substance: MELATONIN
     Route: 065
  3. VALSARTAN. [Concomitant]
     Active Substance: VALSARTAN
     Route: 065
  4. IBUPROFEN. [Concomitant]
     Active Substance: IBUPROFEN
     Dosage: FREQUENCY: 4-3 TIMES A DAY
     Route: 065
  5. ATORVASTATIN [Concomitant]
     Active Substance: ATORVASTATIN
     Route: 065
  6. VITAMIN D3 [Concomitant]
     Active Substance: CHOLECALCIFEROL
     Route: 065
  7. GABAPENTIN. [Concomitant]
     Active Substance: GABAPENTIN
     Route: 065
  8. ZOLPIDEM [Suspect]
     Active Substance: ZOLPIDEM\ZOLPIDEM TARTRATE
     Route: 065
  9. OMEPRAZOLE. [Concomitant]
     Active Substance: OMEPRAZOLE
     Route: 065
  10. ASPIRIN. [Concomitant]
     Active Substance: ASPIRIN
     Route: 065
  11. GABAPENTIN. [Concomitant]
     Active Substance: GABAPENTIN
     Route: 065
     Dates: start: 2006
  12. LYRICA [Concomitant]
     Active Substance: PREGABALIN
     Route: 048
  13. METOPROLOL TARTRATE. [Concomitant]
     Active Substance: METOPROLOL TARTRATE
     Route: 065
  14. DULOXETINE. [Concomitant]
     Active Substance: DULOXETINE
     Route: 065

REACTIONS (1)
  - Drug hypersensitivity [Unknown]
